FAERS Safety Report 18471767 (Version 2)
Quarter: 2020Q4

REPORT INFORMATION
  Report Type: Spontaneous
  Country: AR (occurrence: AR)
  Receive Date: 20201106
  Receipt Date: 20201204
  Transmission Date: 20210114
  Serious: Yes (Life-Threatening, Hospitalization, Other)
  Sender: FDA-Public Use
  Company Number: AR-AMGEN-ARGSP2020179010

PATIENT
  Age: 63 Year
  Sex: Male

DRUGS (1)
  1. ENBREL [Suspect]
     Active Substance: ETANERCEPT
     Indication: PSORIATIC ARTHROPATHY
     Dosage: 50 MG, WEEKLY
     Route: 065
     Dates: start: 20061017

REACTIONS (5)
  - Speech disorder [Unknown]
  - Angina unstable [Unknown]
  - Malaise [Unknown]
  - Pyrexia [Unknown]
  - Respiratory arrest [Unknown]

NARRATIVE: CASE EVENT DATE: 202007
